FAERS Safety Report 7271016-5 (Version None)
Quarter: 2011Q1

REPORT INFORMATION
  Report Type: 
  Country: None (occurrence: None)
  Receive Date: 20110202
  Receipt Date: 20110124
  Transmission Date: 20110831
  Serious: Yes (Hospitalization, Other)
  Sender: FDA-Public Use
  Company Number: CA-ELI_LILLY_AND_COMPANY-CA201101006023

PATIENT
  Age: 71 Year
  Sex: Female

DRUGS (6)
  1. FORTEO [Suspect]
     Indication: OSTEOPOROSIS
     Dosage: 20 UG, DAILY (1/D)
     Route: 058
     Dates: start: 20100227, end: 20101219
  2. CALCIUM [Concomitant]
  3. LASIX [Concomitant]
  4. DIGOXIN [Concomitant]
  5. FORTEO [Suspect]
     Dosage: 20 UG, DAILY (1/D)
     Route: 058
     Dates: start: 20101220
  6. PREDNISONE [Concomitant]

REACTIONS (1)
  - RENAL FAILURE [None]
